FAERS Safety Report 8362832-7 (Version None)
Quarter: 2012Q2

REPORT INFORMATION
  Report Type: 
  Country: None (occurrence: None)
  Receive Date: 20120516
  Receipt Date: 20120514
  Transmission Date: 20120825
  Serious: Yes (Hospitalization, Other)
  Sender: FDA-Public Use
  Company Number: PHFR2011IE05727

PATIENT
  Sex: Female

DRUGS (2)
  1. CLOZARIL [Suspect]
     Dosage: 75-100 MG, ONCE/SINGLE
  2. CLOZARIL [Suspect]
     Indication: SCHIZOPHRENIA
     Dosage: 25 MG, ALTERNATE DAYS
     Route: 048
     Dates: start: 19980427, end: 20111005

REACTIONS (8)
  - SEDATION [None]
  - STRESS [None]
  - FATIGUE [None]
  - SOMNOLENCE [None]
  - INSOMNIA [None]
  - OVERDOSE [None]
  - INCOHERENT [None]
  - SALIVARY HYPERSECRETION [None]
